FAERS Safety Report 7202240-5 (Version None)
Quarter: 2010Q4

REPORT INFORMATION
  Report Type: 
  Country: None (occurrence: None)
  Receive Date: 20101229
  Receipt Date: 20101217
  Transmission Date: 20110411
  Serious: Yes (Hospitalization)
  Sender: FDA-Public Use
  Company Number: PHHY2010JP66999

PATIENT
  Sex: Male
  Weight: 70 kg

DRUGS (5)
  1. TEGRETOL [Suspect]
     Indication: EPILEPSY
     Dosage: 600 MG DAILY
     Route: 048
     Dates: start: 19890101
  2. VALPROATE SODIUM [Suspect]
     Indication: EPILEPSY
     Dosage: 1200 MG
     Route: 048
     Dates: start: 19890101
  3. PHENYTOIN [Suspect]
     Indication: EPILEPSY
     Dosage: 300 MG DAILY
     Route: 048
     Dates: start: 19890101
  4. CLOBAZAM [Suspect]
     Indication: EPILEPSY
     Dosage: 10 MG DAILY
     Route: 048
     Dates: start: 19890101
  5. DIAZEPAM [Suspect]
     Indication: EPILEPSY
     Dosage: 10 MG DAILY
     Route: 048
     Dates: start: 19890101

REACTIONS (12)
  - ALTERED STATE OF CONSCIOUSNESS [None]
  - ANTICONVULSANT DRUG LEVEL INCREASED [None]
  - ATAXIA [None]
  - BLOOD GLUCOSE INCREASED [None]
  - COMA SCALE ABNORMAL [None]
  - EPILEPSY [None]
  - GAMMA-GLUTAMYLTRANSFERASE INCREASED [None]
  - INTENTIONAL OVERDOSE [None]
  - MOANING [None]
  - NYSTAGMUS [None]
  - TOXIC ENCEPHALOPATHY [None]
  - WHITE BLOOD CELL COUNT INCREASED [None]
